FAERS Safety Report 4736189-4 (Version None)
Quarter: 2005Q3

REPORT INFORMATION
  Report Type: 
  Country: None (occurrence: None)
  Receive Date: 20050806
  Receipt Date: 20050727
  Transmission Date: 20060218
  Serious: Yes (Hospitalization)
  Sender: FDA-Public Use
  Company Number: PHBS2005JP11105

PATIENT
  Age: 65 Year
  Sex: Male

DRUGS (8)
  1. TOMIRON [Concomitant]
     Dosage: 300 MG/D
     Route: 048
     Dates: start: 20050524, end: 20050607
  2. AMARYL [Concomitant]
     Dosage: 1-2 MG/D
     Route: 048
     Dates: start: 20050524
  3. EBRANTIL [Concomitant]
     Dosage: 30 MG/D
     Route: 048
     Dates: start: 20050531
  4. MICARDIS [Concomitant]
     Dosage: 20 MG/D
     Route: 048
     Dates: start: 20050531
  5. ADALAT [Concomitant]
     Dosage: 20 MG/D
     Route: 048
     Dates: start: 20050607
  6. LASIX [Concomitant]
     Dosage: 20 MG/D
     Route: 048
     Dates: start: 20050607
  7. ALDACTONE [Concomitant]
     Dosage: 25 MG/D
     Route: 048
     Dates: start: 20050607
  8. LAMISIL [Suspect]
     Indication: NAIL TINEA
     Dosage: 125 MG, QD
     Route: 048
     Dates: start: 20050524, end: 20050621

REACTIONS (6)
  - ALANINE AMINOTRANSFERASE INCREASED [None]
  - ASPARTATE AMINOTRANSFERASE INCREASED [None]
  - BLOOD ALKALINE PHOSPHATASE INCREASED [None]
  - BLOOD GLUCOSE ABNORMAL [None]
  - GAMMA-GLUTAMYLTRANSFERASE INCREASED [None]
  - HEPATIC FUNCTION ABNORMAL [None]
